FAERS Safety Report 5324182-2 (Version None)
Quarter: 2007Q2

REPORT INFORMATION
  Report Type: 
  Country: None (occurrence: None)
  Receive Date: 20070507
  Receipt Date: 20070427
  Transmission Date: 20071010
  Serious: Yes (Death, Other)
  Sender: FDA-Public Use
  Company Number: 2007-00903

PATIENT
  Age: 61 Year
  Sex: Female
  Weight: 67 kg

DRUGS (11)
  1. VELCADE [Suspect]
     Indication: MULTIPLE MYELOMA
     Dates: start: 20070220, end: 20070223
  2. SODIUM BICARBONATE (SOCIUM BICARBONATE) [Concomitant]
  3. CALCICHEW-D3 (COLECALCIFEROL, CALCIUM CARBONATE) [Concomitant]
  4. ZOTON (LANSAPROZOLE) [Concomitant]
  5. DOMPERIDONE (DOMPERIDONE) [Concomitant]
  6. ALLOPURINOL [Concomitant]
  7. POTASSIUM CHLORIDE [Concomitant]
  8. METRONIDAZOLE [Concomitant]
  9. PHOSPHATE-SANDOZ (SODIUM BICARBONATE, POTASSIUM BICARBONATE, SODIUM PH [Concomitant]
  10. ONDANSETRON HCL [Concomitant]
  11. DEXAMETHASONE 0.5MG TAB [Concomitant]

REACTIONS (9)
  - CARDIAC DISORDER [None]
  - CEREBROVASCULAR DISORDER [None]
  - DISEASE PROGRESSION [None]
  - LOWER RESPIRATORY TRACT INFECTION [None]
  - MYOCARDIAL INFARCTION [None]
  - PULMONARY OEDEMA [None]
  - RENAL IMPAIRMENT [None]
  - SEPTIC SHOCK [None]
  - TROPONIN I INCREASED [None]
